FAERS Safety Report 14747903 (Version 1)
Quarter: 2018Q2

REPORT INFORMATION
  Report Type: Spontaneous
  Country: US (occurrence: US)
  Receive Date: 20180411
  Receipt Date: 20180411
  Transmission Date: 20180711
  Serious: No
  Sender: FDA-Public Use
  Company Number: US-JAZZ-2018-US-003032

PATIENT
  Sex: Male

DRUGS (2)
  1. LUVOX CR [Suspect]
     Active Substance: FLUVOXAMINE MALEATE
     Indication: PRODUCT USED FOR UNKNOWN INDICATION
     Dosage: 150 MG, BID
     Route: 048
  2. LUVOX CR [Suspect]
     Active Substance: FLUVOXAMINE MALEATE
     Dosage: 200 MG, BID
     Route: 048

REACTIONS (2)
  - Insomnia [Unknown]
  - Tremor [Unknown]
